FAERS Safety Report 14907935 (Version 2)
Quarter: 2019Q1

REPORT INFORMATION
  Report Type: Spontaneous
  Country: US (occurrence: US)
  Receive Date: 20180517
  Receipt Date: 20190221
  Transmission Date: 20190417
  Serious: Yes (Other)
  Sender: FDA-Public Use
  Company Number: US-ASTRAZENECA-2018SE56970

PATIENT
  Age: 23503 Day
  Sex: Female

DRUGS (14)
  1. PREVACID [Suspect]
     Active Substance: LANSOPRAZOLE
     Dosage: UNK
     Route: 065
     Dates: start: 2009, end: 2013
  2. NEXIUM [Suspect]
     Active Substance: ESOMEPRAZOLE MAGNESIUM
     Dosage: UNK
     Route: 048
     Dates: start: 2009, end: 2013
  3. LEVETIRACETAM. [Concomitant]
     Active Substance: LEVETIRACETAM
  4. PRILOSEC [Suspect]
     Active Substance: OMEPRAZOLE MAGNESIUM
     Dosage: UNK
     Route: 048
     Dates: start: 2009, end: 2013
  5. PRILOSEC OTC [Suspect]
     Active Substance: OMEPRAZOLE MAGNESIUM
     Route: 048
     Dates: start: 2009, end: 2013
  6. PREVACID 24 HR [Suspect]
     Active Substance: LANSOPRAZOLE
     Dosage: UNK
     Route: 065
     Dates: start: 2009, end: 2013
  7. NEXIUM 24HR [Suspect]
     Active Substance: ESOMEPRAZOLE MAGNESIUM
     Dosage: UNK
     Route: 048
     Dates: start: 2009, end: 2013
  8. VIMOVO [Suspect]
     Active Substance: ESOMEPRAZOLE MAGNESIUM\NAPROXEN
     Route: 048
     Dates: start: 2009, end: 2013
  9. PROTONIX [Suspect]
     Active Substance: PANTOPRAZOLE SODIUM
     Dosage: UNK
     Route: 065
     Dates: start: 2009, end: 2013
  10. DEXILANT [Suspect]
     Active Substance: DEXLANSOPRAZOLE
     Route: 065
     Dates: start: 2009, end: 2013
  11. CITALOPRAM [Concomitant]
     Active Substance: CITALOPRAM HYDROBROMIDE
  12. ACIPHEX [Suspect]
     Active Substance: RABEPRAZOLE SODIUM
     Dosage: UNK
     Route: 065
     Dates: start: 2009, end: 2013
  13. NEXIUM [Suspect]
     Active Substance: ESOMEPRAZOLE MAGNESIUM
     Route: 048
     Dates: start: 20051122
  14. METOPROLOL. [Concomitant]
     Active Substance: METOPROLOL

REACTIONS (3)
  - Renal failure [Unknown]
  - Nephrogenic anaemia [Unknown]
  - Chronic kidney disease [Unknown]

NARRATIVE: CASE EVENT DATE: 20131221
